FAERS Safety Report 7913827-6 (Version None)
Quarter: 2011Q4

REPORT INFORMATION
  Report Type: 
  Country: None (occurrence: None)
  Receive Date: 20111110
  Receipt Date: 20111025
  Transmission Date: 20120403
  Serious: Yes (Other)
  Sender: FDA-Public Use
  Company Number: JPI-P-017872

PATIENT
  Age: 62 Year
  Sex: Male

DRUGS (3)
  1. UNSPECIFIED NARCOTICS [Suspect]
     Indication: PAIN
     Dates: start: 20110901
  2. XYREM [Suspect]
     Indication: NARCOLEPSY
     Dosage: ORAL
     Route: 048
     Dates: start: 20060101
  3. XYREM [Suspect]
     Indication: SLEEP APNOEA SYNDROME
     Dosage: ORAL
     Route: 048
     Dates: start: 20060101

REACTIONS (1)
  - RESPIRATORY FAILURE [None]
